FAERS Safety Report 14388354 (Version 1)
Quarter: 2018Q1

REPORT INFORMATION
  Report Type: Spontaneous
  Country: US (occurrence: US)
  Receive Date: 20180115
  Receipt Date: 20180115
  Transmission Date: 20180509
  Serious: Yes (Other)
  Sender: FDA-Public Use
  Company Number: US-SA-2017SA203755

PATIENT
  Age: 68 Year
  Sex: Female
  Weight: 92 kg

DRUGS (15)
  1. TAXOTERE [Suspect]
     Active Substance: DOCETAXEL
     Indication: BREAST CANCER FEMALE
     Dosage: DOSAGE: 142 MG TO 157 MG
     Route: 051
     Dates: start: 20160210, end: 20160210
  2. CARBOPLATIN. [Concomitant]
     Active Substance: CARBOPLATIN
  3. HERCEPTIN [Concomitant]
     Active Substance: TRASTUZUMAB
  4. PERJETA [Concomitant]
     Active Substance: PERTUZUMAB
  5. MAGNESIUM [Concomitant]
     Active Substance: MAGNESIUM
  6. VITAMIN D NOS/CALCIUM CARBONATE [Concomitant]
  7. TAXOTERE [Suspect]
     Active Substance: DOCETAXEL
     Indication: BREAST CANCER FEMALE
     Dosage: DOSAGE: 142 MG TO 157 MG
     Route: 051
     Dates: start: 20151008, end: 20151008
  8. LIDOCAINE. [Concomitant]
     Active Substance: LIDOCAINE
  9. LOVASTATIN. [Concomitant]
     Active Substance: LOVASTATIN
  10. POTASSIUM GLUCONATE [Concomitant]
     Active Substance: POTASSIUM GLUCONATE
  11. METHOTREXATE. [Concomitant]
     Active Substance: METHOTREXATE
  12. TERCONAZOLE. [Concomitant]
     Active Substance: TERCONAZOLE
  13. GLUCOSAMINE [Concomitant]
     Active Substance: GLUCOSAMINE
  14. LORAZEPAM. [Concomitant]
     Active Substance: LORAZEPAM
  15. HYDROCHLOROTHIAZIDE/LOSARTAN [Concomitant]

REACTIONS (1)
  - Alopecia [Not Recovered/Not Resolved]

NARRATIVE: CASE EVENT DATE: 20170702
